FAERS Safety Report 25237898 (Version 1)
Quarter: 2025Q2

REPORT INFORMATION
  Report Type: Spontaneous
  Country: US (occurrence: US)
  Receive Date: 20250425
  Receipt Date: 20250425
  Transmission Date: 20250716
  Serious: Yes (Hospitalization)
  Sender: HETERO
  Company Number: US-AMAROX PHARMA-HET2025US02115

PATIENT
  Age: 79 Year
  Sex: Female

DRUGS (2)
  1. LINEZOLID [Suspect]
     Active Substance: LINEZOLID
     Indication: Wound
     Route: 065
  2. AMIODARONE [Concomitant]
     Active Substance: AMIODARONE
     Indication: Product used for unknown indication
     Route: 065

REACTIONS (1)
  - Acute hepatic failure [Recovered/Resolved]
